FAERS Safety Report 13216126 (Version 1)
Quarter: 2017Q1

REPORT INFORMATION
  Report Type: Report from Study
  Country: US (occurrence: US)
  Receive Date: 20170209
  Receipt Date: 20170209
  Transmission Date: 20170428
  Serious: No
  Sender: FDA-Public Use
  Company Number: US-AMGEN-USASL2017019703

PATIENT
  Age: 13 Year
  Sex: Female

DRUGS (2)
  1. ENBREL [Suspect]
     Active Substance: ETANERCEPT
     Indication: PSORIASIS
     Dosage: 50 MG, 2 TIMES/WK
     Route: 065
  2. ENBREL [Suspect]
     Active Substance: ETANERCEPT
     Dosage: 40 MG, QWK
     Route: 065

REACTIONS (12)
  - Proteinuria [Unknown]
  - Malaise [Unknown]
  - Oropharyngeal pain [Unknown]
  - Weight abnormal [Unknown]
  - Headache [Unknown]
  - Blood urine present [Unknown]
  - Epistaxis [Unknown]
  - Decreased appetite [Unknown]
  - Pelvic pain [Unknown]
  - Menstrual disorder [Not Recovered/Not Resolved]
  - Vomiting [Unknown]
  - White blood cells urine positive [Unknown]
